FAERS Safety Report 13915336 (Version 2)
Quarter: 2017Q4

REPORT INFORMATION
  Report Type: Spontaneous
  Country: US (occurrence: US)
  Receive Date: 20170829
  Receipt Date: 20171026
  Transmission Date: 20180320
  Serious: Yes (Other)
  Sender: FDA-Public Use
  Company Number: US-PFIZER INC-2017364847

PATIENT
  Age: 52 Year
  Sex: Female
  Weight: 74.84 kg

DRUGS (6)
  1. AMLODIPINE [Concomitant]
     Active Substance: AMLODIPINE BESYLATE
     Indication: HYPERTENSION
     Dosage: UNK
  2. BACLOFEN. [Concomitant]
     Active Substance: BACLOFEN
     Indication: BACK PAIN
  3. BACLOFEN. [Concomitant]
     Active Substance: BACLOFEN
     Indication: MUSCLE SPASMS
     Dosage: 10 MG, 3X/DAY, AS NEEDED (1 TABLET 3 TIMES DAILY AS NEEDED BY MOUTH)
     Route: 048
     Dates: start: 2016
  4. BACLOFEN. [Concomitant]
     Active Substance: BACLOFEN
     Indication: ARTHRALGIA
  5. CHANTIX [Suspect]
     Active Substance: VARENICLINE TARTRATE
     Dosage: 1.5 DF, DAILY (HALF OF A PILL IN THE MORNING AND THEN TOOK 1 WHOLE PILL AT 05:00 PM)
     Route: 048
     Dates: start: 20170818, end: 20170818
  6. CHANTIX [Suspect]
     Active Substance: VARENICLINE TARTRATE
     Indication: SMOKING CESSATION THERAPY
     Dosage: 0.5 DF, UNK
     Route: 048
     Dates: start: 20170811, end: 20170817

REACTIONS (9)
  - Abnormal behaviour [Recovered/Resolved]
  - Emotional disorder [Recovered/Resolved]
  - Body height decreased [Unknown]
  - Depressed mood [Recovered/Resolved]
  - Weight decreased [Unknown]
  - Intentional product misuse [Recovered/Resolved]
  - Memory impairment [Recovered/Resolved]
  - Confusional state [Recovered/Resolved]
  - Panic reaction [Recovered/Resolved]

NARRATIVE: CASE EVENT DATE: 201708
